FAERS Safety Report 5736666-3 (Version None)
Quarter: 2008Q2

REPORT INFORMATION
  Report Type: 
  Country: None (occurrence: None)
  Receive Date: 20080508
  Receipt Date: 20080428
  Transmission Date: 20081010
  Serious: Yes (Hospitalization, Disabling)
  Sender: FDA-Public Use
  Company Number: OSCN-NO-08015-0019

PATIENT
  Age: 69 Year
  Sex: Female

DRUGS (11)
  1. OMNISCAN [Suspect]
     Indication: UTERINE POLYP
     Dosage: 20 ML, SINGLE DOSE, I.V. ; 20 ML, SINGLE DOSE, I.V.
     Route: 042
     Dates: start: 20061013, end: 20061013
  2. OMNISCAN [Suspect]
     Indication: UTERINE POLYP
     Dosage: 20 ML, SINGLE DOSE, I.V. ; 20 ML, SINGLE DOSE, I.V.
     Route: 042
     Dates: start: 20070214, end: 20070214
  3. ALLOPURINOL [Concomitant]
  4. LANSOPRAZOLE [Concomitant]
  5. ACETYLSALICYLIC ACID SRT [Concomitant]
  6. WARFARIN SODIUM [Concomitant]
  7. FUROSEMIDE [Concomitant]
  8. OLOPATADINE HYDROCHLORIDE [Concomitant]
  9. CLONAZEPAM [Concomitant]
  10. PHOSBLOCK [Concomitant]
  11. FARESTON [Concomitant]

REACTIONS (21)
  - ANAEMIA [None]
  - AORTIC CALCIFICATION [None]
  - ARTHRALGIA [None]
  - BACK PAIN [None]
  - CELLULITIS [None]
  - DEEP VEIN THROMBOSIS [None]
  - DISEASE COMPLICATION [None]
  - FEELING HOT [None]
  - FIBROSIS [None]
  - HAEMORRHAGE [None]
  - HEPATIC STEATOSIS [None]
  - NEPHROGENIC SYSTEMIC FIBROSIS [None]
  - OEDEMA PERIPHERAL [None]
  - PERIPHERAL ARTERY ANEURYSM [None]
  - PERITONEAL DIALYSIS [None]
  - RENAL ATROPHY [None]
  - RENAL CYST [None]
  - RESTLESS LEGS SYNDROME [None]
  - SEPSIS [None]
  - SHUNT OCCLUSION [None]
  - SUTURE RUPTURE [None]
